FAERS Safety Report 21921881 (Version 1)
Quarter: 2023Q1

REPORT INFORMATION
  Report Type: Report from Study
  Country: US (occurrence: US)
  Receive Date: 20230127
  Receipt Date: 20230127
  Transmission Date: 20230418
  Serious: Yes (Hospitalization, Other)
  Sender: FDA-Public Use
  Company Number: US-BIOGEN-2023BI01183219

PATIENT
  Age: 35 Year
  Sex: Female

DRUGS (1)
  1. TYSABRI [Suspect]
     Active Substance: NATALIZUMAB
     Indication: Multiple sclerosis
     Route: 050
     Dates: start: 20210930

REACTIONS (10)
  - Cat scratch disease [Unknown]
  - Weight decreased [Unknown]
  - Escherichia infection [Unknown]
  - Cellulitis [Unknown]
  - Ear infection [Unknown]
  - Drug intolerance [Unknown]
  - Postoperative abscess [Unknown]
  - Post procedural cellulitis [Unknown]
  - Drug ineffective [Unknown]
  - Vomiting [Unknown]

NARRATIVE: CASE EVENT DATE: 20220901
